FAERS Safety Report 7241957-3 (Version None)
Quarter: 2011Q1

REPORT INFORMATION
  Report Type: 
  Country: None (occurrence: None)
  Receive Date: 20110124
  Receipt Date: 20110118
  Transmission Date: 20110831
  Serious: Yes (Life-Threatening)
  Sender: FDA-Public Use
  Company Number: DE-CEPHALON-2011000356

PATIENT
  Age: 61 Year
  Sex: Male
  Weight: 77 kg

DRUGS (4)
  1. RITUXIMAB [Suspect]
     Route: 042
     Dates: start: 20100804, end: 20100804
  2. IMIPENEM [Concomitant]
     Dates: start: 20100809, end: 20100811
  3. BENDAMUSTINE HCL [Suspect]
     Route: 042
     Dates: start: 20100622, end: 20100805
  4. CEFTAZIDINA [Concomitant]
     Dates: start: 20100805, end: 20100808

REACTIONS (3)
  - RASH [None]
  - SYSTEMIC INFLAMMATORY RESPONSE SYNDROME [None]
  - DRUG HYPERSENSITIVITY [None]
